FAERS Safety Report 12145936 (Version 3)
Quarter: 2016Q3

REPORT INFORMATION
  Report Type: Report from Study
  Country: JP (occurrence: JP)
  Receive Date: 20160304
  Receipt Date: 20160707
  Transmission Date: 20161109
  Serious: Yes (Hospitalization, Other)
  Sender: FDA-Public Use
  Company Number: JP-GILEAD-2016-0201622

PATIENT
  Age: 26 Year
  Sex: Female
  Weight: 49.3 kg

DRUGS (15)
  1. AMBRISENTAN [Suspect]
     Active Substance: AMBRISENTAN
     Indication: PULMONARY ARTERIAL HYPERTENSION
     Dosage: 10 MG, QD
     Route: 048
     Dates: start: 20150513
  2. AMBRISENTAN [Suspect]
     Active Substance: AMBRISENTAN
     Indication: PULMONARY ARTERIAL HYPERTENSION
     Dosage: 5 MG, QD
     Route: 048
     Dates: start: 20150223, end: 20150512
  3. SLOW-K [Concomitant]
     Active Substance: POTASSIUM CHLORIDE
     Indication: PROPHYLAXIS
     Dosage: UNK
     Dates: start: 20150320
  4. MYSLEE [Concomitant]
     Active Substance: ZOLPIDEM TARTRATE
     Indication: PROPHYLAXIS
     Dosage: UNK
     Dates: start: 20150323
  5. ACUATIM [Concomitant]
     Active Substance: NADIFLOXACIN
  6. CARBOCISTEINE [Concomitant]
     Active Substance: CARBOCYSTEINE
     Indication: GASTRITIS PROPHYLAXIS
     Dosage: UNK
     Dates: start: 20150311
  7. BIOFERMIN R (JAPAN) [Concomitant]
     Indication: PROPHYLAXIS AGAINST DIARRHOEA
     Dosage: UNK
     Dates: start: 20150308
  8. CARBOCISTEINE TABLETS [Concomitant]
     Indication: PROPHYLAXIS
     Dosage: UNK
     Dates: start: 20150311
  9. FUROSEMIDE. [Concomitant]
     Active Substance: FUROSEMIDE
     Dosage: UNK
     Dates: start: 20150218
  10. ADCIRCA [Concomitant]
     Active Substance: TADALAFIL
     Dosage: UNK
     Dates: start: 20150218
  11. BIOFERMIN R [Concomitant]
     Active Substance: BACILLUS SUBTILIS\LACTOBACILLUS ACIDOPHILUS\STREPTOCOCCUS FAECAIS
     Indication: PROPHYLAXIS AGAINST DIARRHOEA
     Dosage: UNK
     Dates: start: 20150308
  12. FLOLAN [Suspect]
     Active Substance: EPOPROSTENOL SODIUM
     Indication: PULMONARY ARTERIAL HYPERTENSION
  13. ADCIRCA [Concomitant]
     Active Substance: TADALAFIL
     Indication: PULMONARY ARTERIAL HYPERTENSION
     Dosage: UNK
  14. FLOLAN [Suspect]
     Active Substance: EPOPROSTENOL SODIUM
     Dosage: 2-40 NG/KG/MIN
     Route: 042
     Dates: start: 20150227
  15. COCARL [Concomitant]
     Active Substance: ACETAMINOPHEN
     Dosage: UNK
     Dates: start: 20150513

REACTIONS (6)
  - Acute respiratory distress syndrome [Recovering/Resolving]
  - Pain in extremity [Not Recovered/Not Resolved]
  - Pneumonia [Recovering/Resolving]
  - Device breakage [Recovered/Resolved]
  - Pruritus [Not Recovered/Not Resolved]
  - Headache [Not Recovered/Not Resolved]

NARRATIVE: CASE EVENT DATE: 20150305
